FAERS Safety Report 11796961 (Version 1)
Quarter: 2015Q4

REPORT INFORMATION
  Report Type: Other
  Country: FR (occurrence: FR)
  Receive Date: 20151203
  Receipt Date: 20151203
  Transmission Date: 20160305
  Serious: Yes (Other)
  Sender: FDA-Public Use
  Company Number: FR-APOTEX-2015AP015018

PATIENT
  Age: 42 Year
  Sex: Male

DRUGS (6)
  1. AOTAL [Concomitant]
     Active Substance: ACAMPROSATE CALCIUM
     Indication: ALCOHOLISM
     Route: 065
  2. XEPLION [Suspect]
     Active Substance: PALIPERIDONE PALMITATE
     Indication: SCHIZOPHRENIA
     Dosage: 1 DF, Q.M.T.
     Route: 030
     Dates: start: 201309
  3. SERESTA [Concomitant]
     Active Substance: OXAZEPAM
     Indication: PRODUCT USED FOR UNKNOWN INDICATION
     Route: 065
  4. LEPTICUR [Concomitant]
     Active Substance: TROPATEPINE HYDROCHLORIDE
     Indication: PRODUCT USED FOR UNKNOWN INDICATION
     Route: 065
  5. NICOBION [Concomitant]
     Active Substance: NIACINAMIDE
     Indication: ALCOHOLISM
     Route: 065
  6. PAXIL [Suspect]
     Active Substance: PAROXETINE HYDROCHLORIDE
     Indication: SCHIZOPHRENIA
     Dosage: 30 MG, QD
     Route: 048
     Dates: start: 201509

REACTIONS (2)
  - Type 2 diabetes mellitus [Recovered/Resolved with Sequelae]
  - Hypertriglyceridaemia [Unknown]

NARRATIVE: CASE EVENT DATE: 201510
